FAERS Safety Report 10137171 (Version 1)
Quarter: 2014Q2

REPORT INFORMATION
  Report Type: Report from Study
  Country: US (occurrence: US)
  Receive Date: 20140429
  Receipt Date: 20140429
  Transmission Date: 20141212
  Serious: No
  Sender: FDA-Public Use
  Company Number: US-ABBVIE-14P-163-1223732-00

PATIENT
  Age: 60 Year
  Sex: Male
  Weight: 92.16 kg

DRUGS (2)
  1. ANDROGEL [Suspect]
     Indication: BLOOD TESTOSTERONE DECREASED
     Dates: start: 201402, end: 201403
  2. ANDROGEL [Suspect]
     Dates: start: 201403

REACTIONS (1)
  - Blood testosterone decreased [Not Recovered/Not Resolved]
